FAERS Safety Report 7649581-5 (Version None)
Quarter: 2011Q3

REPORT INFORMATION
  Report Type: 
  Country: None (occurrence: None)
  Receive Date: 20110802
  Receipt Date: 20110721
  Transmission Date: 20111222
  Serious: Yes (Congenital Anomaly)
  Sender: FDA-Public Use
  Company Number: US-RANBAXY-2011US-44225

PATIENT

DRUGS (4)
  1. AMOXICILLIN [Suspect]
     Indication: LYME DISEASE
     Dosage: 500 MG, TID
     Route: 064
     Dates: start: 20080101
  2. AMOXICILLIN [Suspect]
     Indication: PRODUCT USED FOR UNKNOWN INDICATION
     Dosage: 500 MG, TID
     Route: 064
     Dates: start: 20080101
  3. AMOXICILLIN [Suspect]
     Dosage: 500 MG, TID
     Route: 064
     Dates: start: 20080101
  4. VALTREX [Suspect]
     Indication: PRODUCT USED FOR UNKNOWN INDICATION
     Dosage: UNK
     Route: 064
     Dates: start: 20080101

REACTIONS (5)
  - DEVELOPMENTAL DELAY [None]
  - ATAXIA [None]
  - MATERNAL EXPOSURE DURING PREGNANCY [None]
  - HYPOTONIA [None]
  - POOR SUCKING REFLEX [None]
